FAERS Safety Report 10111293 (Version 1)
Quarter: 2014Q2

REPORT INFORMATION
  Report Type: Spontaneous
  Country: IT (occurrence: IT)
  Receive Date: 20140425
  Receipt Date: 20140425
  Transmission Date: 20141212
  Serious: Yes (Hospitalization)
  Sender: FDA-Public Use
  Company Number: IT-SA-2014SA050207

PATIENT
  Age: 66 Year
  Sex: Female

DRUGS (1)
  1. PLERIXAFOR [Suspect]
     Indication: HAEMATOPOIETIC STEM CELL MOBILISATION
     Route: 058

REACTIONS (2)
  - Acute coronary syndrome [Unknown]
  - Chest pain [Unknown]
